FAERS Safety Report 9117004 (Version 1)
Quarter: 2013Q1

REPORT INFORMATION
  Report Type: Spontaneous
  Country: US (occurrence: US)
  Receive Date: 20130225
  Receipt Date: 20130225
  Transmission Date: 20140127
  Serious: No
  Sender: FDA-Public Use
  Company Number: US-PFIZER INC-2013067296

PATIENT
  Sex: Female

DRUGS (7)
  1. CELEBREX [Suspect]
     Indication: PAIN IN EXTREMITY
     Dosage: UNK
  2. CELEBREX [Suspect]
     Indication: ARTHRALGIA
     Dosage: 200 MG, 1X/DAY
     Dates: start: 20130218
  3. MELOXICAM [Suspect]
     Indication: PAIN IN EXTREMITY
     Dosage: UNK
  4. MELOXICAM [Suspect]
     Indication: ARTHRALGIA
  5. TYLENOL [Concomitant]
     Indication: HEADACHE
     Dosage: 500 MG, 2X/DAY
  6. TYLENOL [Concomitant]
     Indication: PAIN IN EXTREMITY
  7. TYLENOL [Concomitant]
     Indication: ARTHRALGIA

REACTIONS (3)
  - Drug ineffective [Unknown]
  - Abdominal discomfort [Not Recovered/Not Resolved]
  - Gastric dilatation [Not Recovered/Not Resolved]
